FAERS Safety Report 8062674 (Version 2)
Quarter: 2012Q4

REPORT INFORMATION
  Report Type: 
  Country: US (occurrence: US)
  Receive Date: 20110801
  Receipt Date: 20121106
  Transmission Date: 20130627
  Serious: Yes (Hospitalization, Other)
  Sender: FDA-Public Use
  Company Number: US-ROCHE-754593

PATIENT
  Age: 19 Year
  Sex: Female
  Weight: 72.6 kg

DRUGS (2)
  1. ACCUTANE [Suspect]
     Indication: ACNE
     Route: 065
     Dates: start: 19991020, end: 2000
  2. ACCUTANE [Suspect]
     Route: 065
     Dates: start: 2001, end: 2002

REACTIONS (16)
  - Colitis ulcerative [Unknown]
  - Abdominal pain [Unknown]
  - Rectal haemorrhage [Unknown]
  - Depression [Unknown]
  - Post-traumatic stress disorder [Unknown]
  - Suicidal ideation [Unknown]
  - Intestinal obstruction [Unknown]
  - Arthritis [Unknown]
  - Anaemia [Unknown]
  - Blood triglycerides increased [Unknown]
  - Headache [Recovered/Resolved]
  - Dry skin [Unknown]
  - Back pain [Unknown]
  - Mood swings [Unknown]
  - Lip dry [Unknown]
  - Fatigue [Unknown]
